FAERS Safety Report 13238472 (Version 1)
Quarter: 2017Q1

REPORT INFORMATION
  Report Type: Spontaneous
  Country: US (occurrence: US)
  Receive Date: 20170215
  Receipt Date: 20170215
  Transmission Date: 20170428
  Serious: Yes (Life-Threatening, Hospitalization, Other)
  Sender: FDA-Public Use
  Company Number: None

PATIENT
  Age: 25 Year
  Sex: Female
  Weight: 60.75 kg

DRUGS (6)
  1. MULTI VITAMIN [Concomitant]
     Active Substance: VITAMINS
  2. MUCUS RELIEF SEVERE CONGESTION AND COUGH MAXIMUM STRENGTH [Suspect]
     Active Substance: DEXTROMETHORPHAN HYDROBROMIDE\GUAIFENESIN\PHENYLEPHRINE HYDROCHLORIDE
     Indication: COUGH
     Dosage: QUANTITY:1 DOSE 20 ML CUP;?
     Route: 048
     Dates: start: 20170208, end: 20170208
  3. ADVIL [Concomitant]
     Active Substance: IBUPROFEN
  4. MUCUS RELIEF SEVERE CONGESTION AND COUGH MAXIMUM STRENGTH [Suspect]
     Active Substance: DEXTROMETHORPHAN HYDROBROMIDE\GUAIFENESIN\PHENYLEPHRINE HYDROCHLORIDE
     Indication: OROPHARYNGEAL PAIN
     Dosage: QUANTITY:1 DOSE 20 ML CUP;?
     Route: 048
     Dates: start: 20170208, end: 20170208
  5. TYLENOL [Concomitant]
     Active Substance: ACETAMINOPHEN
  6. MUCUS RELIEF SEVERE CONGESTION AND COUGH MAXIMUM STRENGTH [Suspect]
     Active Substance: DEXTROMETHORPHAN HYDROBROMIDE\GUAIFENESIN\PHENYLEPHRINE HYDROCHLORIDE
     Indication: LOWER RESPIRATORY TRACT CONGESTION
     Dosage: QUANTITY:1 DOSE 20 ML CUP;?
     Route: 048
     Dates: start: 20170208, end: 20170208

REACTIONS (18)
  - Dysarthria [None]
  - Paraesthesia [None]
  - Loss of consciousness [None]
  - Confusional state [None]
  - Burning sensation [None]
  - Skin warm [None]
  - Hypersensitivity [None]
  - Migraine [None]
  - Product tampering [None]
  - Drug screen positive [None]
  - Cough [None]
  - Abasia [None]
  - Hyporesponsive to stimuli [None]
  - Hyperhidrosis [None]
  - Communication disorder [None]
  - Tremor [None]
  - Dyspnoea [None]
  - Insomnia [None]

NARRATIVE: CASE EVENT DATE: 20170208
